FAERS Safety Report 6774269-2 (Version None)
Quarter: 2010Q2

REPORT INFORMATION
  Report Type: 
  Country: None (occurrence: None)
  Receive Date: 20100617
  Receipt Date: 20100609
  Transmission Date: 20101027
  Serious: Yes (Other)
  Sender: FDA-Public Use
  Company Number: US-BAYER-201028454GPV

PATIENT

DRUGS (5)
  1. ALEMTUZUMAB [Suspect]
     Indication: STEM CELL TRANSPLANT
     Dosage: 5 ESCALATING DOSES
  2. FLUDARABINE [Suspect]
     Indication: STEM CELL TRANSPLANT
     Dosage: TOTAL DAILY DOSE: 180 MG/M2
  3. BUSULFEX [Suspect]
     Indication: STEM CELL TRANSPLANT
     Dosage: 16 MG/KG {/= 4 YR AND 12.8 MG/KG FOR }4 YR, TOTAL 8 DOSES
  4. FK 506 [Concomitant]
     Indication: PROPHYLAXIS AGAINST GRAFT VERSUS HOST DISEASE
  5. MMF [Concomitant]
     Indication: PROPHYLAXIS AGAINST GRAFT VERSUS HOST DISEASE

REACTIONS (1)
  - HEPATOTOXICITY [None]
